FAERS Safety Report 8917092 (Version 1)
Quarter: 2012Q4

REPORT INFORMATION
  Report Type: 
  Country: GB (occurrence: GB)
  Receive Date: 20121120
  Receipt Date: 20121120
  Transmission Date: 20130627
  Serious: Yes (Hospitalization)
  Sender: FDA-Public Use
  Company Number: GB-009507513-1211GBR006776

PATIENT
  Age: 78 Year
  Sex: Female

DRUGS (7)
  1. LOSARTAN POTASSIUM [Suspect]
     Dosage: 25 mg, qd
     Route: 048
     Dates: start: 20121010, end: 20121029
  2. ATENOLOL [Concomitant]
     Dosage: 50 mg, qd
     Route: 048
  3. CIMETIDINE [Concomitant]
     Dosage: 400 mg, bid
     Route: 048
  4. NITROGLYCERIN [Concomitant]
     Dosage: 400 Microgram, UNK
     Route: 061
  5. ISOSORBIDE MONONITRATE [Concomitant]
     Dosage: UNK
     Route: 048
     Dates: end: 20121010
  6. LEVOTHYROXINE SODIUM [Concomitant]
     Dosage: 75 Microgram, qd
  7. ACETAMINOPHEN [Concomitant]
     Dosage: 4 DF, prn

REACTIONS (2)
  - Glomerular filtration rate decreased [Recovering/Resolving]
  - Renal failure acute [Recovering/Resolving]
